FAERS Safety Report 23637030 (Version 2)
Quarter: 2024Q1

REPORT INFORMATION
  Report Type: Spontaneous
  Country: CZ (occurrence: CZ)
  Receive Date: 20240315
  Receipt Date: 20240328
  Transmission Date: 20240409
  Serious: Yes (Hospitalization, Disabling, Other)
  Sender: FDA-Public Use
  Company Number: None

PATIENT
  Age: 76 Year
  Sex: Female

DRUGS (3)
  1. EYLEA [Suspect]
     Active Substance: AFLIBERCEPT
     Indication: Product used for unknown indication
     Dosage: UNK UNK, ONCE, SOLUTION FOR INJECTION, 40MG/ML
     Route: 031
     Dates: start: 20240214, end: 20240214
  2. ZALTRAP [Suspect]
     Active Substance: ZIV-AFLIBERCEPT
     Indication: Product used for unknown indication
     Dosage: UNK UNK, ONCE
     Route: 047
     Dates: start: 20240214, end: 20240214
  3. TOBRADEX [Concomitant]
     Active Substance: DEXAMETHASONE\TOBRAMYCIN
     Indication: Product used for unknown indication
     Dosage: 5 DF, QD
     Route: 047
     Dates: start: 20240214

REACTIONS (6)
  - Visual impairment [Unknown]
  - Endophthalmitis [Recovered/Resolved with Sequelae]
  - Eye pain [Unknown]
  - Product storage error [Unknown]
  - Contraindicated product administered [Unknown]
  - Inadequate aseptic technique in use of product [Unknown]

NARRATIVE: CASE EVENT DATE: 20240214
